FAERS Safety Report 6906153-5 (Version None)
Quarter: 2010Q3

REPORT INFORMATION
  Report Type: 
  Country: None (occurrence: None)
  Receive Date: 20100803
  Receipt Date: 20100803
  Transmission Date: 20110219
  Serious: Yes (Other)
  Sender: FDA-Public Use
  Company Number: None

PATIENT
  Sex: Female
  Weight: 52.1637 kg

DRUGS (1)
  1. CIPRO [Suspect]

REACTIONS (6)
  - ARTHRALGIA [None]
  - HEADACHE [None]
  - LYMPH NODE PAIN [None]
  - LYMPHADENOPATHY [None]
  - MUSCULAR WEAKNESS [None]
  - PAIN IN EXTREMITY [None]
